FAERS Safety Report 4736286-3 (Version None)
Quarter: 2005Q3

REPORT INFORMATION
  Report Type: 
  Country: None (occurrence: None)
  Receive Date: 20050804
  Receipt Date: 20050725
  Transmission Date: 20060218
  Serious: Yes (Hospitalization, Other)
  Sender: FDA-Public Use
  Company Number: 2005107304

PATIENT
  Age: 45 Year
  Sex: Female

DRUGS (3)
  1. NEURONTIN [Suspect]
     Indication: BIPOLAR DISORDER
  2. NEURONTIN [Suspect]
     Indication: OVERDOSE
  3. ALL OTHER THERAPEUTIC PRODUCTS (ALL OTHER THERAPEUTIC PRODUCTS) [Suspect]
     Indication: INTENTIONAL MISUSE

REACTIONS (5)
  - DRUG INEFFECTIVE [None]
  - OVERDOSE [None]
  - POLYTRAUMATISM [None]
  - SUICIDAL IDEATION [None]
  - SUICIDE ATTEMPT [None]
